FAERS Safety Report 11052965 (Version 1)
Quarter: 2015Q2

REPORT INFORMATION
  Report Type: Spontaneous
  Country: US (occurrence: None)
  Receive Date: 20150420
  Receipt Date: 20150420
  Transmission Date: 20150821
  Serious: Yes (Hospitalization)
  Sender: FDA-Public Use
  Company Number: None

PATIENT
  Age: 54 Year
  Sex: Male
  Weight: 128.5 kg

DRUGS (2)
  1. IDARUBICIN [Suspect]
     Active Substance: IDARUBICIN
     Dates: end: 20150222
  2. CYTARABINE. [Suspect]
     Active Substance: CYTARABINE
     Dates: end: 20150224

REACTIONS (4)
  - Pulmonary oedema [None]
  - Organising pneumonia [None]
  - Atrial flutter [None]
  - Atrial fibrillation [None]

NARRATIVE: CASE EVENT DATE: 20150322
